FAERS Safety Report 22062523 (Version 4)
Quarter: 2023Q2

REPORT INFORMATION
  Report Type: Spontaneous
  Country: US (occurrence: US)
  Receive Date: 20230305
  Receipt Date: 20230508
  Transmission Date: 20230722
  Serious: Yes (Other)
  Sender: FDA-Public Use
  Company Number: US-BAXTER-2023BAX014054

PATIENT
  Age: 27 Year
  Sex: Male
  Weight: 79 kg

DRUGS (64)
  1. CEFEPIME [Suspect]
     Active Substance: CEFEPIME HYDROCHLORIDE
     Indication: Product used for unknown indication
     Dosage: UNK
     Route: 065
  2. ZOSYN [Suspect]
     Active Substance: PIPERACILLIN SODIUM\TAZOBACTAM SODIUM
     Indication: Product used for unknown indication
     Dosage: 4.5 G, THRICE DAILY, IN 100 ML 0.9% SODIUM CHLORIDE, EXTENDED 4 HOUR INFUSION
     Route: 042
  3. ZOSYN [Suspect]
     Active Substance: PIPERACILLIN SODIUM\TAZOBACTAM SODIUM
     Dosage: 4.5 GRAMS (G) EVERY 8 HOURS, (4.5 G IN 0.9% NACL 100 ML EXTENDED 4 HOUR INFUSION)
     Route: 042
     Dates: start: 20220605, end: 20220605
  4. ZOSYN [Suspect]
     Active Substance: PIPERACILLIN SODIUM\TAZOBACTAM SODIUM
     Dosage: 4.5 GRAMS (G) EVERY 8 HOURS, (4.5 G IN 0.9% NACL 100 ML EXTENDED 4 HOUR INFUSION)
     Route: 042
     Dates: start: 20220606, end: 20220606
  5. ZOSYN [Suspect]
     Active Substance: PIPERACILLIN SODIUM\TAZOBACTAM SODIUM
     Dosage: 4.5 GRAMS (G) EVERY 8 HOURS, (4.5 G IN 0.9% NACL 100 ML EXTENDED 4 HOUR INFUSION)
     Route: 042
     Dates: start: 20220607, end: 20220607
  6. ZOSYN [Suspect]
     Active Substance: PIPERACILLIN SODIUM\TAZOBACTAM SODIUM
     Dosage: 4.5 GRAMS (G) EVERY 8 HOURS, (4.5 G IN 0.9% NACL 100 ML EXTENDED 4 HOUR INFUSION)
     Route: 042
     Dates: start: 20220608, end: 20220608
  7. SODIUM CHLORIDE [Suspect]
     Active Substance: SODIUM CHLORIDE
     Indication: Medication dilution
     Dosage: 100 ML, THRICE DAILY, MIXED WITH 4.5 G ZOSYN, EXTENDED 4 HOUR INFUSION
     Route: 065
  8. SODIUM CHLORIDE [Suspect]
     Active Substance: SODIUM CHLORIDE
     Indication: Product used for unknown indication
     Dosage: 100 ML, ONCE DAILY, IN 100 MG MICAFUNGIN
     Route: 042
     Dates: end: 20220607
  9. SODIUM CHLORIDE [Suspect]
     Active Substance: SODIUM CHLORIDE
     Dosage: 10 ML, EVERY 8 HOURS INTRACATHETER (DOUBLE LUMEN, CONTINUOUS 0.9 % NACL SYRINGE 10 ML)
     Route: 042
     Dates: start: 20220606
  10. SODIUM CHLORIDE [Suspect]
     Active Substance: SODIUM CHLORIDE
     Dosage: 10 ML INTRACATHETER, AS NEEDED (0.9 % NACL SYRINGE 10 ML)
     Route: 042
     Dates: start: 20220526
  11. SODIUM CHLORIDE [Suspect]
     Active Substance: SODIUM CHLORIDE
     Dosage: 10 ML INTRACATHETER, EVERY 8 HOURS (SPECIFIED), (PERIPHERAL CONTINUOUS 0.9 % NACL SYRINGE 10 ML)
     Route: 042
     Dates: start: 20220607
  12. SODIUM CHLORIDE [Suspect]
     Active Substance: SODIUM CHLORIDE
     Dosage: 10 ML INTRACATHETER, AS NEEDED, (0.9 % NACL SYRINGE 10 ML)
     Route: 042
     Dates: start: 20220608
  13. SODIUM CHLORIDE [Suspect]
     Active Substance: SODIUM CHLORIDE
     Dosage: CONTINUOUS INFUSION AS NEEDED, LAST RATE: 10 ML/HR
     Route: 042
     Dates: start: 20220608
  14. SODIUM CHLORIDE [Suspect]
     Active Substance: SODIUM CHLORIDE
     Dosage: CONTINUOUS INFUSION AS NEEDED
     Route: 042
  15. SODIUM CHLORIDE [Suspect]
     Active Substance: SODIUM CHLORIDE
     Dosage: CONTINUOUS INFUSION AS NEEDED, LAST RATE: 10 ML/HR
     Route: 042
     Dates: start: 20220609
  16. SODIUM CHLORIDE [Suspect]
     Active Substance: SODIUM CHLORIDE
     Dosage: CONTINUOUS INFUSION AS NEEDED
     Route: 042
     Dates: start: 20220607
  17. DEXTROSE [Suspect]
     Active Substance: DEXTROSE\DEXTROSE MONOHYDRATE
     Indication: Medication dilution
     Dosage: EVERY 12 HOURS, IN 360 MG ZOFRAN (ACICLOVIR), IN 100 ML BAG, STRENGTH: 5MG/KG
     Route: 042
     Dates: end: 20220607
  18. HEPARIN SODIUM [Suspect]
     Active Substance: HEPARIN SODIUM
     Dosage: LOCK FLUSH 10 UNITS/ML, 3 ML SYRINGE, 3 ML INTRACATHETER EVERY 8 HOURS (DOUBLE LUMEN)
     Route: 042
     Dates: start: 20220606
  19. HEPARIN SODIUM [Suspect]
     Active Substance: HEPARIN SODIUM
     Dosage: LOCK FLUSH 10 UNITS/ML, 3 ML SYRINGE, 3 ML INTRACATHETER AS NEEDED
     Route: 042
     Dates: start: 20220607
  20. HEPARIN SODIUM [Suspect]
     Active Substance: HEPARIN SODIUM
     Dosage: LOCK FLUSH 10 UNITS/ML, 3 ML SYRINGE, 3 ML INTRACATHETER AS NEEDED
     Route: 042
     Dates: start: 20220608
  21. MAGNESIUM SULFATE [Suspect]
     Active Substance: MAGNESIUM SULFATE
     Dosage: PRE-FILLED BAG 2 G 50 ML (25 ML/H) AS NEEDED
     Route: 042
     Dates: start: 20220606
  22. MAGNESIUM SULFATE [Suspect]
     Active Substance: MAGNESIUM SULFATE
     Dosage: PRE-FILLED BAG 2 G 50 ML (25 ML/H) AS NEEDED
     Route: 042
     Dates: start: 20220607
  23. FAMOTIDINE [Suspect]
     Active Substance: FAMOTIDINE
     Dosage: UNK
     Route: 065
     Dates: start: 20220522, end: 20220522
  24. POTASSIUM CHLORIDE [Suspect]
     Active Substance: POTASSIUM CHLORIDE
     Dosage: UNK
     Route: 065
     Dates: start: 20220528, end: 20220530
  25. GILTERITINIB [Suspect]
     Active Substance: GILTERITINIB
     Indication: Acute myeloid leukaemia
     Dosage: 120 MG, CYCLIC
     Route: 048
     Dates: start: 20220523, end: 20220525
  26. CYTARABINE [Suspect]
     Active Substance: CYTARABINE
     Indication: Acute myeloid leukaemia
     Dosage: 100 MG/M2, CYCLIC (TOTAL DOSE: 200 MG)
     Route: 042
     Dates: start: 20220514, end: 20220521
  27. DAUNORUBICIN [Suspect]
     Active Substance: DAUNORUBICIN
     Indication: Acute myeloid leukaemia
     Dosage: 90 MG/M2, CYCLIC (TOTAL DOSE: 180 MG)
     Route: 042
     Dates: start: 20220514, end: 20220516
  28. ZOVIRAX [Suspect]
     Active Substance: ACYCLOVIR
     Indication: Product used for unknown indication
     Dosage: 360 MG, EVERY 12 HOURS, IN 5% DEXTROSE 100 ML BAG, STRENGTH: 5MG/KG
     Route: 042
     Dates: start: 20220606, end: 20220606
  29. ZOVIRAX [Suspect]
     Active Substance: ACYCLOVIR
     Dosage: 360 MG, EVERY 12 HOURS, IN 5% DEXTROSE 100 ML BAG, STRENGTH: 5MG/KG
     Route: 042
     Dates: start: 20220607, end: 20220607
  30. ZOVIRAX [Suspect]
     Active Substance: ACYCLOVIR
     Dosage: 360 MG, EVERY 12 HOURS, IN 5% DEXTROSE 100 ML BAG, STRENGTH: 5MG/KG
     Route: 042
     Dates: start: 20220608, end: 20220608
  31. MYCAMINE [Suspect]
     Active Substance: MICAFUNGIN SODIUM
     Indication: Product used for unknown indication
     Dosage: 100 MG, ONCE DAILY, IN 100 ML 0.9% SODIUM CHLORIDE, 100 MG
     Route: 042
  32. MYCAMINE [Suspect]
     Active Substance: MICAFUNGIN SODIUM
     Dosage: 150 MG, ONCE DAILY, IN 100 ML 0.9% SODIUM CHLORIDE, 100 MG
     Route: 042
     Dates: start: 20220606, end: 20220606
  33. MYCAMINE [Suspect]
     Active Substance: MICAFUNGIN SODIUM
     Dosage: 100 MG, ONCE DAILY, IN 100 ML 0.9% SODIUM CHLORIDE, 100 MG
     Route: 042
     Dates: start: 20220607, end: 20220607
  34. MYCAMINE [Suspect]
     Active Substance: MICAFUNGIN SODIUM
     Dosage: 100 MG, ONCE DAILY, IN 100 ML 0.9% SODIUM CHLORIDE, 100 MG
     Route: 042
     Dates: start: 20220608, end: 20220608
  35. MAALOX ANTACID [Suspect]
     Active Substance: ALUMINUM HYDROXIDE\DIMETHICONE\MAGNESIUM HYDROXIDE
     Dosage: 200-200-20 MG/5ML ORAL SUSPENSION 30 ML, 30 ML EVERY 4 HOURS AS NEEDED
     Route: 048
  36. TUMS [Suspect]
     Active Substance: CALCIUM CARBONATE
     Dosage: 1 TABLET, EVERY 1 HOUR AS NEEDED (STRENGTH: 500 MG)
     Route: 048
  37. REFRESH OPTIVE [Suspect]
     Active Substance: CARBOXYMETHYLCELLULOSE SODIUM\GLYCERIN
     Dosage: 1 DROP EACH EYE AS NEEDED, STRENGTH: 0.5 %- 0.9 %, DOSAGE FORM: OPHTHALMIC SOLUTION (SENSITIVE)
     Route: 047
  38. REFRESH OPTIVE [Suspect]
     Active Substance: CARBOXYMETHYLCELLULOSE SODIUM\GLYCERIN
     Dosage: UNK
     Route: 065
     Dates: start: 20220524, end: 20220524
  39. COLLAGENASE SANTYL [Suspect]
     Active Substance: COLLAGENASE CLOSTRIDIUM HISTOLYTICUM
     Dosage: EVERY DAY AT AN UNSPECIFIED DOSE ON 06, 07, 08JUN2022
     Route: 061
     Dates: start: 20220606
  40. DECADRON [Suspect]
     Active Substance: DEXAMETHASONE
     Dosage: 4 MG, EVERY DAY ON 06, 07 AND 08JUN2022 (STRENGTH: 4 MG)
     Route: 042
     Dates: start: 20220606
  41. PEPCID [Suspect]
     Active Substance: FAMOTIDINE
     Dosage: 20 MG, 2X/DAY AS NEEDED (STRENGTH: 20 MG)
     Route: 048
  42. LIDOCAINE VISCOUS [Suspect]
     Active Substance: LIDOCAINE HYDROCHLORIDE
     Dosage: 15 ML MOUTH/THROAT EVERY 3 HOURS AS NEEDED, DOSAGE FORM: SOLUTION
     Route: 050
     Dates: start: 20220522, end: 20220522
  43. LIDOCAINE [Suspect]
     Active Substance: LIDOCAINE
     Dosage: 1 PATCH EVERYDAY AS NEEDED
     Route: 062
     Dates: start: 20220606
  44. ALUMINUM HYDROXIDE\DIPHENHYDRAMINE\LIDOCAINE\MAGNESIUM HYDROXIDE [Suspect]
     Active Substance: ALUMINUM HYDROXIDE\DIPHENHYDRAMINE\LIDOCAINE\MAGNESIUM HYDROXIDE
     Dosage: 30 ML, 4 TIMES PER DAY AS NEEDED (RADIOTHERAPY MIXTURE)
     Route: 048
  45. IMODIUM [Suspect]
     Active Substance: LOPERAMIDE HYDROCHLORIDE
     Dosage: 2 MG, 4 TIMES PER DAY AS NEEDED (STRENGTH: 2 MG)
     Route: 048
     Dates: start: 20220606
  46. IMODIUM [Suspect]
     Active Substance: LOPERAMIDE HYDROCHLORIDE
     Dosage: 2 MILLIGRAMS (MG)
     Route: 065
     Dates: start: 20220605, end: 20220608
  47. MELATONIN [Suspect]
     Active Substance: MELATONIN
     Dosage: 6 MG NIGHTLY AS NEEDED (STRENGTH: 6 MG)
     Route: 048
  48. MELATONIN [Suspect]
     Active Substance: MELATONIN
     Dosage: UNK
     Route: 065
     Dates: start: 20220528, end: 20220528
  49. POTASSIUM CHLORIDE [Suspect]
     Active Substance: POTASSIUM CHLORIDE
     Dosage: 20 MEQ IN 50 ML BAG, 20 MEQ AS NEEDED
     Route: 042
  50. ZOFRAN [Suspect]
     Active Substance: ONDANSETRON HYDROCHLORIDE
     Dosage: 8 MG, EVERY 12 HOURS AS NEEDED (TABLET OR INJECTION)
     Route: 042
  51. AFRIN [Suspect]
     Active Substance: OXYMETAZOLINE
     Dosage: 2 SPRAY AS NEEDED
     Route: 045
  52. PROTONIX [Suspect]
     Active Substance: PANTOPRAZOLE SODIUM
     Dosage: 40 MG, EVERY 12 HOURS (SPECIFIED), ON 06, 07, 08JUN2022
     Route: 042
     Dates: start: 20220606
  53. COMPAZINE [Suspect]
     Active Substance: PROCHLORPERAZINE MALEATE
     Dosage: 10 MG, EVERY 4 HOURS AS NEEDED (STRENGTH: 10 MG)
     Route: 048
  54. COMPAZINE [Suspect]
     Active Substance: PROCHLORPERAZINE MALEATE
     Dosage: 10 MG, EVERY 6 HOURS AS NEEDED
     Route: 042
     Dates: start: 20220608
  55. COMPAZINE [Suspect]
     Active Substance: PROCHLORPERAZINE MALEATE
     Dosage: 10 MG, EVERY 6 HOURS AS NEEDED ON 07 AND 08JUN2022
     Route: 042
     Dates: start: 20220607
  56. ACTIGALL [Suspect]
     Active Substance: URSODIOL
     Dosage: 300 MG, 2 TIMES PER DAY (STRENGTH: 300 MG) ON 06, 07 AND 08JUN2022
     Route: 048
     Dates: start: 20220606
  57. OXYMETAZOLINE [Suspect]
     Active Substance: OXYMETAZOLINE
     Dosage: UNK
     Route: 065
     Dates: start: 20220516, end: 20220516
  58. DILAUDID [Suspect]
     Active Substance: HYDROMORPHONE HYDROCHLORIDE
     Dosage: 0.5 MILLIGRAMS (MG)
     Route: 065
     Dates: start: 20220605, end: 20220606
  59. TYLENOL [Suspect]
     Active Substance: ACETAMINOPHEN
     Dosage: 1000 MILLIGRAMS (MG)
     Route: 065
     Dates: start: 20220605, end: 20220606
  60. TUMS [Suspect]
     Active Substance: CALCIUM CARBONATE
     Dosage: UNK
     Route: 065
     Dates: start: 20220524, end: 20220524
  61. PROTOPORPHYRIN DISODIUM [Concomitant]
     Active Substance: PROTOPORPHYRIN DISODIUM
     Route: 065
  62. CARBOXYMETHYLCELLULOSE [Concomitant]
     Active Substance: CARBOXYMETHYLCELLULOSE
     Route: 065
  63. COLLAGENASE CLOSTRIDIUM HISTOLYTICUM [Concomitant]
     Active Substance: COLLAGENASE CLOSTRIDIUM HISTOLYTICUM
     Dosage: UNK
     Route: 065
  64. PANTOPRAZOLE [Concomitant]
     Active Substance: PANTOPRAZOLE
     Route: 065

REACTIONS (3)
  - Drug-induced liver injury [Recovered/Resolved]
  - Aspartate aminotransferase increased [Recovering/Resolving]
  - Blood bilirubin increased [Recovering/Resolving]

NARRATIVE: CASE EVENT DATE: 20220606
